FAERS Safety Report 17246597 (Version 7)
Quarter: 2020Q2

REPORT INFORMATION
  Report Type: Report from Study
  Country: US (occurrence: US)
  Receive Date: 20200108
  Receipt Date: 20200615
  Transmission Date: 20200713
  Serious: Yes (Hospitalization, Other)
  Sender: FDA-Public Use
  Company Number: NVSC2020US002662

PATIENT
  Age: 1 Year
  Sex: Male
  Weight: 8 kg

DRUGS (4)
  1. TREPROSTINIL. [Suspect]
     Active Substance: TREPROSTINIL
     Dosage: 19 NG/KG/MIN, CONTINUOUS
     Route: 042
     Dates: start: 20191219
  2. TRACLEER [Suspect]
     Active Substance: BOSENTAN
     Indication: PRODUCT USED FOR UNKNOWN INDICATION
     Dosage: UNK
     Route: 065
  3. SILDENAFIL CITRATE. [Concomitant]
     Active Substance: SILDENAFIL CITRATE
     Indication: PRODUCT USED FOR UNKNOWN INDICATION
     Dosage: UNK
     Route: 065
  4. TREPROSTINIL. [Suspect]
     Active Substance: TREPROSTINIL
     Indication: PULMONARY ARTERIAL HYPERTENSION
     Dosage: 19 NG/KG/MIN, CONTINUOUS
     Route: 042
     Dates: start: 20191219

REACTIONS (9)
  - Lower respiratory tract infection [Unknown]
  - Blood calcium decreased [Unknown]
  - Blood potassium increased [Unknown]
  - White blood cell count increased [Unknown]
  - Febrile convulsion [Unknown]
  - Hepatoblastoma [Unknown]
  - Pyrexia [Unknown]
  - Tracheitis [Unknown]
  - Hepatocellular carcinoma [Unknown]

NARRATIVE: CASE EVENT DATE: 20200528
